FAERS Safety Report 5970803-0 (Version None)
Quarter: 2008Q4

REPORT INFORMATION
  Report Type: 
  Country: None (occurrence: None)
  Receive Date: 20081126
  Receipt Date: 20081113
  Transmission Date: 20090506
  Serious: No
  Sender: FDA-Public Use
  Company Number: US-ABBOTT-08P-163-0488243-00

PATIENT
  Sex: Female
  Weight: 94.432 kg

DRUGS (8)
  1. SIMCOR [Suspect]
     Indication: BLOOD CHOLESTEROL INCREASED
     Dosage: 500/20 MG
     Route: 048
     Dates: start: 20080801, end: 20081018
  2. SIMCOR [Suspect]
     Indication: BLOOD TRIGLYCERIDES INCREASED
  3. AMLODIPINE [Concomitant]
     Indication: HYPERTENSION
  4. METFORMIN HCL [Concomitant]
     Indication: DIABETES MELLITUS
  5. LEVOTHYROXINE SODIUM [Concomitant]
     Indication: BLOOD THYROID STIMULATING HORMONE DECREASED
  6. CLOPIDOGREL [Concomitant]
     Indication: CAROTID ARTERY OCCLUSION
  7. ROSUVASTATIN [Concomitant]
     Indication: BLOOD CHOLESTEROL INCREASED
  8. ROSUVASTATIN [Concomitant]
     Indication: BLOOD TRIGLYCERIDES INCREASED

REACTIONS (2)
  - PRURITUS [None]
  - RASH [None]
